FAERS Safety Report 9399000 (Version 1)
Quarter: 2013Q3

REPORT INFORMATION
  Report Type: Report from Study
  Country: MW (occurrence: MW)
  Receive Date: 20130714
  Receipt Date: 20130714
  Transmission Date: 20140515
  Serious: Yes (Hospitalization)
  Sender: FDA-Public Use
  Company Number: MW-009507513-1010USA02825

PATIENT
  Age: 37 Year
  Sex: Male
  Weight: 58.5 kg

DRUGS (3)
  1. RALTEGRAVIR POTASSIUM [Suspect]
     Indication: HIV INFECTION
     Dosage: UNK
     Route: 048
     Dates: start: 20100922
  2. LOPINAVIR (+) RITONAVIR [Suspect]
     Indication: HIV INFECTION
     Route: 048
     Dates: start: 20100922
  3. SULFAMETHOXAZOLE (+) TRIMETHOPRIM [Concomitant]
     Dates: start: 20060213

REACTIONS (5)
  - Sepsis [Not Recovered/Not Resolved]
  - Diabetes mellitus [Not Recovered/Not Resolved]
  - Pyrexia [Not Recovered/Not Resolved]
  - Pain in extremity [Not Recovered/Not Resolved]
  - Disseminated tuberculosis [Recovered/Resolved]
